FAERS Safety Report 12868967 (Version 1)
Quarter: 2016Q4

REPORT INFORMATION
  Report Type: Spontaneous
  Country: US (occurrence: US)
  Receive Date: 20161021
  Receipt Date: 20161021
  Transmission Date: 20170207
  Serious: No
  Sender: FDA-Public Use
  Company Number: US-PFIZER INC-2016485616

PATIENT
  Sex: Female

DRUGS (1)
  1. CIPROFLOXACIN HCL [Suspect]
     Active Substance: CIPROFLOXACIN HYDROCHLORIDE
     Dosage: UNK

REACTIONS (3)
  - Pruritus [Unknown]
  - Rash [Unknown]
  - Drug hypersensitivity [Not Recovered/Not Resolved]
